FAERS Safety Report 23354722 (Version 2)
Quarter: 2024Q1

REPORT INFORMATION
  Report Type: Report from Study
  Country: BR (occurrence: None)
  Receive Date: 20240101
  Receipt Date: 20240209
  Transmission Date: 20240409
  Serious: Yes (Life-Threatening, Hospitalization, Other)
  Sender: FDA-Public Use
  Company Number: 2024A000089

PATIENT
  Age: 3815 Week
  Sex: Female
  Weight: 76 kg

DRUGS (3)
  1. FASENRA [Suspect]
     Active Substance: BENRALIZUMAB
     Indication: Asthma
     Route: 058
     Dates: start: 20221121
  2. ESOMEPRAZOLE [Suspect]
     Active Substance: ESOMEPRAZOLE
     Indication: Abdominal discomfort
     Dosage: 40.0MG UNKNOWN
     Route: 048
  3. PERIDAL [Concomitant]
     Indication: Abdominal discomfort

REACTIONS (4)
  - Asthma [Unknown]
  - Fall [Recovering/Resolving]
  - Pain [Unknown]
  - Flatulence [Unknown]

NARRATIVE: CASE EVENT DATE: 20231225
